FAERS Safety Report 7364658-X (Version None)
Quarter: 2011Q1

REPORT INFORMATION
  Report Type: 
  Country: None (occurrence: None)
  Receive Date: 20110315
  Receipt Date: 20110315
  Transmission Date: 20110831
  Serious: Yes (Other)
  Sender: FDA-Public Use
  Company Number: None

PATIENT
  Sex: Male

DRUGS (1)
  1. ANDRODERM [Suspect]
     Dosage: ONE PATCH -5MG- DAY TRANSDERMAL
     Route: 062
     Dates: start: 20110203, end: 20110310

REACTIONS (2)
  - APPLICATION SITE HYPERSENSITIVITY [None]
  - PRODUCT QUALITY ISSUE [None]
